FAERS Safety Report 6318112-4 (Version None)
Quarter: 2009Q3

REPORT INFORMATION
  Report Type: 
  Country: None (occurrence: None)
  Receive Date: 20090821
  Receipt Date: 20090813
  Transmission Date: 20100115
  Serious: Yes (Life-Threatening, Hospitalization)
  Sender: FDA-Public Use
  Company Number: DE-JNJFOC-20090804146

PATIENT
  Age: 21 Year
  Sex: Female
  Weight: 200 kg

DRUGS (3)
  1. DOLORMIN EXTRA [Suspect]
     Route: 048
  2. DOLORMIN EXTRA [Suspect]
     Indication: HEADACHE
     Dosage: 400-800 MG 2-3 TIMES/WEEK
     Route: 048
  3. ASPIRIN [Suspect]
     Indication: HEADACHE
     Dosage: 500-1500MG 2-3 TIMES/WEEK
     Route: 048

REACTIONS (1)
  - THROMBOTIC THROMBOCYTOPENIC PURPURA [None]
